FAERS Safety Report 8065666-6 (Version None)
Quarter: 2012Q1

REPORT INFORMATION
  Report Type: 
  Country: None (occurrence: None)
  Receive Date: 20120124
  Receipt Date: 20120116
  Transmission Date: 20120608
  Serious: Yes (Hospitalization)
  Sender: FDA-Public Use
  Company Number: US-BAYER-201039653NA

PATIENT
  Age: 33 Year
  Sex: Female
  Weight: 58.957 kg

DRUGS (10)
  1. TRAMADOL HCL +#8211; ACETAMINOPHEN [Concomitant]
  2. WELLBUTRIN XL [Concomitant]
     Dosage: 150 MG, UNK
  3. YAZ [Suspect]
     Indication: ORAL CONTRACEPTION
     Dosage: UNK
     Dates: start: 20041001, end: 20050601
  4. FLEXERIL [Concomitant]
  5. AMITRIPTYLINE HCL [Concomitant]
     Dosage: 10 MG, UNK
  6. CYCLOBENZAPRINE [Concomitant]
     Dosage: 10 MG, UNK
  7. YASMIN [Suspect]
     Indication: PRODUCT USED FOR UNKNOWN INDICATION
     Dates: start: 20041001, end: 20050601
  8. ROBINAL FORTE [Concomitant]
     Dosage: 2 MG, UNK
  9. MEPROZINE [Concomitant]
  10. ORTHO TRI-CYCLEN [Concomitant]

REACTIONS (1)
  - PULMONARY EMBOLISM [None]
